FAERS Safety Report 5549940-0 (Version None)
Quarter: 2007Q4

REPORT INFORMATION
  Report Type: 
  Country: None (occurrence: None)
  Receive Date: 20071212
  Receipt Date: 20071207
  Transmission Date: 20080405
  Serious: No
  Sender: FDA-Public Use
  Company Number: US-ASTRAZENECA-2007UW24835

PATIENT
  Age: 13 Year
  Sex: Female
  Weight: 43.1 kg

DRUGS (6)
  1. SYMBICORT [Suspect]
     Indication: ASTHMA
     Dosage: 80/4.5 UG BID
     Route: 055
     Dates: start: 20071004
  2. ALBUTEROL [Concomitant]
     Dates: start: 20071012
  3. ALBUTEROL [Concomitant]
     Dates: start: 20071020
  4. CLARITIN [Concomitant]
  5. PULMICORT [Concomitant]
     Dosage: 200 MCG
     Route: 055
  6. SEREVENT [Concomitant]

REACTIONS (2)
  - CHEST DISCOMFORT [None]
  - DYSPNOEA [None]
